FAERS Safety Report 4616509-1 (Version None)
Quarter: 2005Q1

REPORT INFORMATION
  Report Type: 
  Country: None (occurrence: None)
  Receive Date: 20050318
  Receipt Date: 20050307
  Transmission Date: 20050727
  Serious: Yes (Other)
  Sender: FDA-Public Use
  Company Number: 2005036905

PATIENT
  Age: 51 Year
  Sex: Female
  Weight: 71.2147 kg

DRUGS (8)
  1. CELEBREX [Suspect]
     Indication: ARTHRITIS
     Dosage: ORAL
     Route: 048
  2. ALDACTONE [Suspect]
     Indication: HAIR GROWTH ABNORMAL
     Dosage: 200 MG (100 MG, 2 IN 1 D)
     Dates: end: 20030101
  3. BEXTRA [Suspect]
     Indication: ARTHRITIS
     Dosage: 40 MG (20 MG, 2 IN 1 D), ORAL
     Route: 048
     Dates: end: 20020101
  4. CONJUGATED ESTROGENS [Concomitant]
  5. HYZAAR [Concomitant]
  6. METOPROLOL TARTRATE [Concomitant]
  7. FENOFIBRATE [Concomitant]
  8. SIMVASTATIN [Concomitant]

REACTIONS (12)
  - ABDOMINAL DISTENSION [None]
  - ABNORMAL BEHAVIOUR [None]
  - ANGER [None]
  - DRUG INEFFECTIVE [None]
  - FALL [None]
  - GASTRIC DISORDER [None]
  - HAIR GROWTH ABNORMAL [None]
  - HOT FLUSH [None]
  - HYSTERECTOMY [None]
  - LIMB INJURY [None]
  - TRISMUS [None]
  - WEIGHT INCREASED [None]
